FAERS Safety Report 10858846 (Version 1)
Quarter: 2015Q1

REPORT INFORMATION
  Report Type: Spontaneous
  Country: US (occurrence: US)
  Receive Date: 20150223
  Receipt Date: 20150223
  Transmission Date: 20150721
  Serious: No
  Sender: FDA-Public Use
  Company Number: US-CELGENEUS-163-21880-14060220

PATIENT
  Age: 66 Year
  Sex: Male
  Weight: 81.72 kg

DRUGS (2)
  1. ANDROGEL [Interacting]
     Active Substance: TESTOSTERONE
     Indication: PRODUCT USED FOR UNKNOWN INDICATION
     Route: 065
     Dates: start: 20131204
  2. REVLIMID [Suspect]
     Active Substance: LENALIDOMIDE
     Indication: PLASMA CELL MYELOMA
     Dosage: 5 MILLIGRAM
     Route: 048
     Dates: start: 201312

REACTIONS (1)
  - Blood iron decreased [Recovering/Resolving]

NARRATIVE: CASE EVENT DATE: 20140310
